FAERS Safety Report 6820498-9 (Version None)
Quarter: 2010Q3

REPORT INFORMATION
  Report Type: 
  Country: None (occurrence: None)
  Receive Date: 20100707
  Receipt Date: 20100615
  Transmission Date: 20110219
  Serious: Yes (Hospitalization)
  Sender: FDA-Public Use
  Company Number: US-BIOGENIDEC-2010BI018787

PATIENT
  Age: 61 Year
  Sex: Female

DRUGS (3)
  1. AVONEX [Suspect]
     Indication: MULTIPLE SCLEROSIS
     Route: 030
     Dates: start: 20081001
  2. AVONEX [Suspect]
     Route: 030
     Dates: end: 20030801
  3. AVONEX [Suspect]
     Route: 030
     Dates: start: 20030801

REACTIONS (3)
  - INTERVERTEBRAL DISC OPERATION [None]
  - MULTIPLE SCLEROSIS RELAPSE [None]
  - SPINAL COLUMN STENOSIS [None]
